FAERS Safety Report 7853067-2 (Version None)
Quarter: 2011Q4

REPORT INFORMATION
  Report Type: 
  Country: None (occurrence: None)
  Receive Date: 20111026
  Receipt Date: 20111020
  Transmission Date: 20120403
  Serious: Yes (Hospitalization)
  Sender: FDA-Public Use
  Company Number: GB-JNJFOC-20110907028

PATIENT
  Age: 28 Year
  Sex: Female

DRUGS (4)
  1. CODEINE SULFATE [Suspect]
     Indication: PRODUCT USED FOR UNKNOWN INDICATION
     Route: 048
  2. ACETAMINOPHEN [Suspect]
     Indication: PRODUCT USED FOR UNKNOWN INDICATION
     Dosage: 64 DF
     Route: 048
  3. ACETAMINOPHEN [Suspect]
     Route: 048
  4. CITALOPRAM HYDROBROMIDE [Suspect]
     Indication: PRODUCT USED FOR UNKNOWN INDICATION
     Dosage: TOOK FOUR WEEKS SUPPLY (AMOUNT UNSPECIFIED)
     Route: 048

REACTIONS (4)
  - INTENTIONAL SELF-INJURY [None]
  - LOSS OF CONSCIOUSNESS [None]
  - DEPRESSION [None]
  - INTENTIONAL OVERDOSE [None]
